FAERS Safety Report 10193231 (Version 1)
Quarter: 2014Q2

REPORT INFORMATION
  Report Type: Spontaneous
  Country: US (occurrence: US)
  Receive Date: 20140524
  Receipt Date: 20140524
  Transmission Date: 20141212
  Serious: No
  Sender: FDA-Public Use
  Company Number: US-SA-2013SA116720

PATIENT
  Age: 59 Year
  Sex: Male

DRUGS (3)
  1. LANTUS SOLOSTAR [Suspect]
     Indication: TYPE 1 DIABETES MELLITUS
     Dosage: DOSE:60 UNIT(S)
     Route: 051
  2. SOLOSTAR [Concomitant]
     Indication: TYPE 1 DIABETES MELLITUS
  3. NOVOLOG [Concomitant]

REACTIONS (2)
  - Weight decreased [Unknown]
  - Immunodeficiency [Unknown]
